FAERS Safety Report 7690943-8 (Version None)
Quarter: 2011Q3

REPORT INFORMATION
  Report Type: 
  Country: None (occurrence: None)
  Receive Date: 20110812
  Receipt Date: 20110808
  Transmission Date: 20111222
  Serious: Yes (Death, Hospitalization)
  Sender: FDA-Public Use
  Company Number: ALP-11-08

PATIENT
  Age: 32 Year
  Sex: Male

DRUGS (3)
  1. THC [Concomitant]
  2. ALPRAZOLAM [Suspect]
  3. CITALOPRAM [Concomitant]

REACTIONS (3)
  - PHYTOTHERAPY [None]
  - TOXICITY TO VARIOUS AGENTS [None]
  - ACCIDENTAL DEATH [None]
